FAERS Safety Report 19686873 (Version 1)
Quarter: 2021Q3

REPORT INFORMATION
  Report Type: Spontaneous
  Country: US (occurrence: US)
  Receive Date: 20210811
  Receipt Date: 20210811
  Transmission Date: 20211014
  Serious: No
  Sender: FDA-Public Use
  Company Number: US-FRESENIUS KABI-FK202108403

PATIENT
  Sex: Female

DRUGS (1)
  1. FULVESTRANT INJECTION [Suspect]
     Active Substance: FULVESTRANT
     Indication: BREAST CANCER STAGE I
     Dosage: UNKNOWN
     Route: 065

REACTIONS (2)
  - Alopecia [Unknown]
  - Impaired healing [Unknown]
